FAERS Safety Report 11977320 (Version 1)
Quarter: 2016Q1

REPORT INFORMATION
  Report Type: Spontaneous
  Country: US (occurrence: US)
  Receive Date: 20160129
  Receipt Date: 20160129
  Transmission Date: 20160526
  Serious: No
  Sender: FDA-Public Use
  Company Number: US-INVAGEN PHARMACEUTICALS, INC.-1047083

PATIENT
  Age: 45 Year
  Sex: Female
  Weight: 90.91 kg

DRUGS (2)
  1. EFFEXOR [Concomitant]
     Active Substance: VENLAFAXINE HYDROCHLORIDE
     Route: 048
  2. GABAPENTIN. [Suspect]
     Active Substance: GABAPENTIN
     Indication: FIBROMYALGIA
     Route: 048
     Dates: start: 20150310, end: 20150601

REACTIONS (1)
  - Drug ineffective [Unknown]
